FAERS Safety Report 6753691-4 (Version None)
Quarter: 2010Q2

REPORT INFORMATION
  Report Type: 
  Country: None (occurrence: None)
  Receive Date: 20100603
  Receipt Date: 20100525
  Transmission Date: 20101027
  Serious: Yes (Death, Other)
  Sender: FDA-Public Use
  Company Number: US-ROCHE-703308

PATIENT
  Age: 69 Year
  Sex: Female

DRUGS (1)
  1. PEGASYS [Suspect]
     Indication: HEPATITIS C
     Dosage: ROUTE: INJECTION
     Route: 050
     Dates: start: 20090101

REACTIONS (8)
  - DEATH [None]
  - DIALYSIS [None]
  - EATING DISORDER [None]
  - HYPOPHAGIA [None]
  - MALAISE [None]
  - RASH MACULAR [None]
  - RENAL FAILURE ACUTE [None]
  - VOMITING [None]
